FAERS Safety Report 5354710-2 (Version None)
Quarter: 2007Q2

REPORT INFORMATION
  Report Type: 
  Country: None (occurrence: None)
  Receive Date: 20070611
  Receipt Date: 20070529
  Transmission Date: 20071010
  Serious: Yes (Other)
  Sender: FDA-Public Use
  Company Number: CHNY2006JP03345

PATIENT
  Age: 76 Year
  Sex: Female

DRUGS (8)
  1. NICOTINE [Suspect]
     Indication: SMOKING CESSATION THERAPY
     Dosage: SEE IMAGE
     Route: 062
     Dates: start: 20061017, end: 20061112
  2. NICOTINE [Suspect]
     Indication: SMOKING CESSATION THERAPY
     Dosage: SEE IMAGE
     Route: 062
     Dates: start: 20061113, end: 20061120
  3. HERBESSOR R (DILTIAZEM HYDROCHLORIDE) [Concomitant]
  4. MAGMITT KENEI (MAGNESIUM OXIDE) [Concomitant]
  5. SELBEX (TEPRENONE) [Concomitant]
  6. ASPIRIN [Concomitant]
  7. PURSENNID/SCH/ (SENNOSIDE A+B, SENNOSIDE A+B CALCIUM) [Concomitant]
  8. LIPITOR/NET/ (ATORVASTATIN CALCIUM) [Concomitant]

REACTIONS (13)
  - ALANINE AMINOTRANSFERASE INCREASED [None]
  - ASPARTATE AMINOTRANSFERASE INCREASED [None]
  - BLOOD ALKALINE PHOSPHATASE INCREASED [None]
  - BLOOD CREATININE INCREASED [None]
  - BLOOD LACTATE DEHYDROGENASE INCREASED [None]
  - BLOOD UREA INCREASED [None]
  - BREATH ODOUR [None]
  - DECREASED APPETITE [None]
  - DYSGEUSIA [None]
  - GAMMA-GLUTAMYLTRANSFERASE INCREASED [None]
  - LIVER DISORDER [None]
  - STOMACH DISCOMFORT [None]
  - TREATMENT NONCOMPLIANCE [None]
